FAERS Safety Report 20764857 (Version 2)
Quarter: 2022Q2

REPORT INFORMATION
  Report Type: Report from Study
  Country: US (occurrence: US)
  Receive Date: 20220428
  Receipt Date: 20220509
  Transmission Date: 20220721
  Serious: Yes (Life-Threatening, Hospitalization)
  Sender: FDA-Public Use
  Company Number: US-TEVA-2022-US-2030014

PATIENT
  Age: 53 Year
  Sex: Male

DRUGS (4)
  1. TRANEXAMIC ACID [Suspect]
     Active Substance: TRANEXAMIC ACID
     Indication: Pharyngeal haemorrhage
     Dosage: SYSTEMIC TRANEXAMIC ACID
     Route: 065
  2. TRANEXAMIC ACID [Suspect]
     Active Substance: TRANEXAMIC ACID
     Indication: Pharyngeal haemorrhage
     Dosage: TOPICAL TRANEXAMIC ACID
     Route: 065
  3. HEPARIN [Suspect]
     Active Substance: HEPARIN SODIUM
     Indication: Anticoagulant therapy
     Dosage: SYSTEMIC HEPARIN INFUSION
     Route: 050
  4. DESMOPRESSIN [Concomitant]
     Active Substance: DESMOPRESSIN
     Indication: Drug therapy
     Route: 065

REACTIONS (4)
  - Pulmonary haemorrhage [Recovered/Resolved]
  - Pharyngeal haemorrhage [Recovered/Resolved]
  - Haemorrhage [Recovered/Resolved]
  - Therapy non-responder [Unknown]
